FAERS Safety Report 9906572 (Version 1)
Quarter: 2014Q1

REPORT INFORMATION
  Report Type: Spontaneous
  Country: GB (occurrence: GB)
  Receive Date: 20140218
  Receipt Date: 20140218
  Transmission Date: 20141002
  Serious: Yes (Other)
  Sender: FDA-Public Use
  Company Number: GB-009507513-1402GBR007847

PATIENT
  Age: 79 Year
  Sex: Female
  Weight: 51 kg

DRUGS (5)
  1. ALENDRONATE SODIUM [Suspect]
     Indication: FEMUR FRACTURE
     Dosage: 70 MG, QW
     Route: 048
     Dates: start: 20070304, end: 20130628
  2. VITAMINS (UNSPECIFIED) [Concomitant]
  3. OMEGA-3 MARINE TRIGLYCERIDES [Concomitant]
  4. TEMAZEPAM [Concomitant]
     Dosage: 10 MG, QD
  5. LEVOTHYROXINE SODIUM [Concomitant]
     Dosage: 25 MICROGRAM, QD

REACTIONS (5)
  - Hypoaesthesia [Recovering/Resolving]
  - Bone pain [Recovering/Resolving]
  - Flatulence [Recovering/Resolving]
  - Malaise [Recovering/Resolving]
  - Myalgia [Recovering/Resolving]
